FAERS Safety Report 17252088 (Version 1)
Quarter: 2020Q1

REPORT INFORMATION
  Report Type: Spontaneous
  Country: US (occurrence: US)
  Receive Date: 20200108
  Receipt Date: 20200108
  Transmission Date: 20200409
  Serious: No
  Sender: FDA-Public Use
  Company Number: None

PATIENT
  Age: 12 Year
  Sex: Female
  Weight: 49.5 kg

DRUGS (1)
  1. OSELTAMIVIR PHOSPHATE 75 MG [Suspect]
     Active Substance: OSELTAMIVIR PHOSPHATE
     Indication: INFLUENZA
     Route: 048
     Dates: start: 20191218, end: 20191219

REACTIONS (3)
  - Hallucination [None]
  - Paranoia [None]
  - Confusional state [None]

NARRATIVE: CASE EVENT DATE: 20191218
